FAERS Safety Report 9332955 (Version 1)
Quarter: 2013Q2

REPORT INFORMATION
  Report Type: Spontaneous
  Country: JP (occurrence: JP)
  Receive Date: 20130606
  Receipt Date: 20130606
  Transmission Date: 20140414
  Serious: Yes (Other)
  Sender: FDA-Public Use
  Company Number: JP-ASTELLAS-2013JP005893

PATIENT
  Age: 44 Year
  Sex: Male
  Weight: 56 kg

DRUGS (30)
  1. GRACEPTOR [Suspect]
     Indication: IMMUNOSUPPRESSANT DRUG THERAPY
     Dosage: 0.5 MG, UNKNOWN/D
     Route: 048
     Dates: end: 201208
  2. GRACEPTOR [Suspect]
     Dosage: 1.5 MG, UNKNOWN/D
     Route: 048
     Dates: start: 201007, end: 201008
  3. GRACEPTOR [Suspect]
     Dosage: 2 MG, UNKNOWN/D
     Route: 048
     Dates: start: 201008, end: 20101219
  4. GRACEPTOR [Suspect]
     Dosage: 1.5 MG, UNKNOWN/D
     Route: 048
  5. PROGRAF [Suspect]
     Indication: IMMUNOSUPPRESSANT DRUG THERAPY
     Dosage: 6 MG, UNKNOWN/D
     Route: 048
     Dates: start: 20100501, end: 20100501
  6. PROGRAF [Suspect]
     Dosage: 1 MG, BID
     Route: 048
     Dates: start: 20100502, end: 201007
  7. PROGRAF [Suspect]
     Indication: IMMUNOSUPPRESSANT DRUG THERAPY
     Dosage: 2.5 MG, UNKNOWN/D
     Route: 041
     Dates: start: 20100501, end: 20100502
  8. BAKTAR [Suspect]
     Indication: RENAL TRANSPLANT
     Dosage: 480 MG, UID/QD
     Route: 048
     Dates: start: 201005, end: 201208
  9. CELLCEPT                           /01275102/ [Concomitant]
     Indication: IMMUNOSUPPRESSANT DRUG THERAPY
     Dosage: 0.5 G, BID
     Route: 048
     Dates: start: 20100501, end: 20100530
  10. CELLCEPT                           /01275102/ [Concomitant]
     Dosage: 0.5 G, BID
     Route: 048
  11. PARIET [Concomitant]
     Indication: RENAL TRANSPLANT
     Dosage: 10 MG, UID/QD
     Route: 048
     Dates: start: 20100501
  12. CALBLOCK [Concomitant]
     Indication: HYPERTENSION
     Dosage: 8 MG, UID/QD
     Route: 048
     Dates: start: 20100501, end: 2010
  13. CALBLOCK [Concomitant]
     Dosage: 8 MG, BID
     Route: 048
     Dates: start: 2010
  14. PREDNISOLONE [Concomitant]
     Indication: RENAL TRANSPLANT
     Dosage: 20 MG, UNKNOWN/D
     Route: 048
  15. PREDNISOLONE [Concomitant]
     Dosage: 15 MG, UNKNOWN/D
     Route: 048
  16. PREDNISOLONE [Concomitant]
     Dosage: 10 MG, UNKNOWN/D
     Route: 048
  17. PREDNISOLONE [Concomitant]
     Dosage: 5 MG, UNKNOWN/D
     Route: 048
     Dates: start: 201005, end: 201008
  18. PREDNISOLONE [Concomitant]
     Dosage: 10 MG, UNKNOWN/D
     Route: 048
     Dates: start: 201008
  19. METHYLPREDNISOLONE [Concomitant]
     Indication: IMMUNOSUPPRESSANT DRUG THERAPY
     Dosage: 500 MG, UNKNOWN/D
     Route: 042
     Dates: start: 20100501
  20. PREDNISOLONE SODIUM SUCCINATE [Concomitant]
     Dosage: 50 MG, UNKNOWN/D
     Route: 041
     Dates: start: 20100502, end: 20100504
  21. PREDNISOLONE SODIUM SUCCINATE [Concomitant]
     Dosage: 40 MG, UNKNOWN/D
     Route: 041
  22. PREDNISOLONE SODIUM SUCCINATE [Concomitant]
     Dosage: 30 MG, UNKNOWN/D
     Route: 041
  23. MIZORIBINE [Concomitant]
     Indication: IMMUNOSUPPRESSANT DRUG THERAPY
     Dosage: 100 MG, BID
     Route: 048
     Dates: start: 20100531, end: 20101219
  24. NIFEDIPINE [Concomitant]
     Indication: HYPERTENSION
     Dosage: 20 MG, TID
     Route: 048
  25. AMLODIPINE BESILATE [Concomitant]
     Indication: HYPERTENSION
     Dosage: 5 MG, BID
     Route: 048
  26. IRBESARTAN [Concomitant]
     Indication: HYPERTENSION
     Dosage: 100 MG, UID/QD
     Route: 048
  27. GAMMA GLOBULIN [Concomitant]
     Indication: CYTOMEGALOVIRUS TEST POSITIVE
     Route: 041
  28. DENOSINE                           /00784201/ [Concomitant]
     Indication: CYTOMEGALOVIRUS TEST POSITIVE
     Route: 041
  29. DOXAZOSIN MESILATE [Concomitant]
     Indication: HYPERTENSION
     Dosage: 2 MG, UID/QD
     Route: 048
  30. ARTIST [Concomitant]
     Indication: HYPERTENSION
     Dosage: 10 MG, UID/QD
     Route: 048

REACTIONS (3)
  - Renal disorder [Not Recovered/Not Resolved]
  - Hepatic failure [Recovered/Resolved]
  - Infection [Unknown]
